FAERS Safety Report 12877217 (Version 1)
Quarter: 2016Q4

REPORT INFORMATION
  Report Type: Spontaneous
  Country: US (occurrence: US)
  Receive Date: 20161021
  Receipt Date: 20161021
  Transmission Date: 20170207
  Serious: No
  Sender: FDA-Public Use
  Company Number: None

PATIENT
  Age: 52 Year
  Sex: Female

DRUGS (1)
  1. HUMIRA [Suspect]
     Active Substance: ADALIMUMAB
     Indication: PSORIASIS
     Dosage: 40MG EVERY 14 DAYS SUBCUTANEOUS
     Route: 058
     Dates: start: 20160910

REACTIONS (2)
  - Melanocytic naevus [None]
  - Skin irritation [None]

NARRATIVE: CASE EVENT DATE: 20160920
